FAERS Safety Report 11666664 (Version 2)
Quarter: 2015Q4

REPORT INFORMATION
  Report Type: Report from Study
  Country: US (occurrence: US)
  Receive Date: 20151027
  Receipt Date: 20151029
  Transmission Date: 20160304
  Serious: Yes (Other)
  Sender: FDA-Public Use
  Company Number: PHEH2014US018290

PATIENT
  Age: 13 Year
  Sex: Male

DRUGS (3)
  1. L-LYSINE [Concomitant]
     Active Substance: LYSINE
     Indication: PRODUCT USED FOR UNKNOWN INDICATION
     Dosage: UNK UNK, QD
     Route: 065
  2. AFINITOR [Suspect]
     Active Substance: EVEROLIMUS
     Dosage: 7.5 MG, DAILY ON (MON/WED/FRI)
     Route: 048
     Dates: start: 20150801
  3. AFINITOR [Suspect]
     Active Substance: EVEROLIMUS
     Indication: BRAIN NEOPLASM BENIGN
     Dosage: 7.5 MG, QD
     Route: 048
     Dates: start: 20140425

REACTIONS (8)
  - Headache [Unknown]
  - Renal failure [Unknown]
  - Sinus disorder [Recovered/Resolved]
  - Influenza like illness [Recovered/Resolved]
  - Oral pain [Recovered/Resolved]
  - Drug level decreased [Unknown]
  - Aggression [Recovered/Resolved]
  - Oral pain [Unknown]

NARRATIVE: CASE EVENT DATE: 20140911
